FAERS Safety Report 10193378 (Version 1)
Quarter: 2014Q2

REPORT INFORMATION
  Report Type: Spontaneous
  Country: US (occurrence: US)
  Receive Date: 20140524
  Receipt Date: 20140524
  Transmission Date: 20141212
  Serious: No
  Sender: FDA-Public Use
  Company Number: US-SA-2013SA127769

PATIENT
  Sex: Female

DRUGS (2)
  1. LANTUS [Suspect]
     Indication: TYPE 2 DIABETES MELLITUS
     Route: 065
  2. VICTOZA [Suspect]
     Route: 065

REACTIONS (7)
  - Weight increased [Recovering/Resolving]
  - Depression [Unknown]
  - Anxiety [Recovered/Resolved]
  - Panic attack [Unknown]
  - Asthenia [Recovered/Resolved]
  - Psoriasis [Unknown]
  - Blood glucose increased [Unknown]
